FAERS Safety Report 8909819 (Version 1)
Quarter: 2012Q4

REPORT INFORMATION
  Report Type: 
  Country: US (occurrence: US)
  Receive Date: 20121115
  Receipt Date: 20121115
  Transmission Date: 20130627
  Serious: Yes (Disabling, Other)
  Sender: FDA-Public Use
  Company Number: US-PFIZER INC-2012284788

PATIENT
  Age: 46 Year
  Sex: Female
  Weight: 57.6 kg

DRUGS (3)
  1. LYRICA [Suspect]
     Indication: FIBROMYALGIA
     Dosage: 50 mg, 3x/day
     Route: 048
  2. LYRICA [Suspect]
     Dosage: 75 mg, UNK
     Route: 048
     Dates: end: 201207
  3. LYRICA [Suspect]
     Dosage: 75 mg, UNK
     Route: 048
     Dates: start: 2012

REACTIONS (7)
  - Road traffic accident [Unknown]
  - Malaise [Unknown]
  - Weight decreased [Unknown]
  - Memory impairment [Not Recovered/Not Resolved]
  - Weight increased [Unknown]
  - Drug administration error [Unknown]
  - Blood cholesterol decreased [Unknown]
